FAERS Safety Report 20559015 (Version 1)
Quarter: 2022Q1

REPORT INFORMATION
  Report Type: Spontaneous
  Country: ES (occurrence: ES)
  Receive Date: 20220307
  Receipt Date: 20220307
  Transmission Date: 20220423
  Serious: Yes (Other)
  Sender: FDA-Public Use
  Company Number: ES-MLMSERVICE-20220223-3395142-1

PATIENT
  Age: 76 Year
  Sex: Male

DRUGS (10)
  1. HYDROCHLOROTHIAZIDE [Suspect]
     Active Substance: HYDROCHLOROTHIAZIDE
     Indication: Product used for unknown indication
  2. PREGABALIN [Concomitant]
     Active Substance: PREGABALIN
  3. OMEPRAZOLE [Concomitant]
     Active Substance: OMEPRAZOLE
  4. AMLODIPINE [Concomitant]
     Active Substance: AMLODIPINE BESYLATE
  5. TRAMADOL [Concomitant]
     Active Substance: TRAMADOL
  6. ATORVASTATIN [Concomitant]
     Active Substance: ATORVASTATIN
  7. OLMESARTAN [Concomitant]
     Active Substance: OLMESARTAN
  8. ALLOPURINOL [Concomitant]
     Active Substance: ALLOPURINOL
  9. TAMSULOSIN [Concomitant]
     Active Substance: TAMSULOSIN
  10. ASPIRIN [Concomitant]
     Active Substance: ASPIRIN

REACTIONS (1)
  - Pseudoporphyria [Recovered/Resolved]
